FAERS Safety Report 6751749-7 (Version None)
Quarter: 2010Q2

REPORT INFORMATION
  Report Type: 
  Country: None (occurrence: None)
  Receive Date: 20100602
  Receipt Date: 20100520
  Transmission Date: 20101027
  Serious: Yes (Other)
  Sender: FDA-Public Use
  Company Number: PHHY2010JP30687

PATIENT
  Age: 72 Year
  Sex: Male

DRUGS (2)
  1. NEORAL [Suspect]
     Indication: PSORIASIS
     Dosage: 300 MG/DAY
     Route: 048
     Dates: start: 20091101
  2. NEORAL [Suspect]
     Dosage: 200 MG/DAY
     Route: 048
     Dates: end: 20100301

REACTIONS (2)
  - DIPLOPIA [None]
  - ENDOCRINE OPHTHALMOPATHY [None]
